FAERS Safety Report 23327143 (Version 1)
Quarter: 2023Q4

REPORT INFORMATION
  Report Type: Spontaneous
  Country: US (occurrence: None)
  Receive Date: 20231221
  Receipt Date: 20231221
  Transmission Date: 20240109
  Serious: Yes (Death, Other)
  Sender: FDA-Public Use
  Company Number: 2023A289381

PATIENT
  Sex: Female
  Weight: 72.6 kg

DRUGS (5)
  1. PRILOSEC OTC [Suspect]
     Active Substance: OMEPRAZOLE MAGNESIUM
     Indication: Gastrooesophageal reflux disease
     Route: 048
     Dates: start: 2012, end: 2017
  2. DEXILANT [Suspect]
     Active Substance: DEXLANSOPRAZOLE
     Indication: Gastrooesophageal reflux disease
     Dates: start: 20140224, end: 20140723
  3. GABAPENTIN [Concomitant]
     Active Substance: GABAPENTIN
     Indication: Gastrooesophageal reflux disease
     Dates: start: 2018
  4. FUROSEMIDE [Concomitant]
     Active Substance: FUROSEMIDE
     Indication: Gastrooesophageal reflux disease
     Dates: start: 2018
  5. BACLOFEN [Concomitant]
     Active Substance: BACLOFEN
     Indication: Gastrooesophageal reflux disease
     Dates: start: 2018

REACTIONS (3)
  - Death [Fatal]
  - Chronic kidney disease [Not Recovered/Not Resolved]
  - End stage renal disease [Not Recovered/Not Resolved]
